FAERS Safety Report 7400997-1 (Version None)
Quarter: 2011Q2

REPORT INFORMATION
  Report Type: 
  Country: None (occurrence: None)
  Receive Date: 20110407
  Receipt Date: 20110404
  Transmission Date: 20111010
  Serious: Yes (Life-Threatening)
  Sender: FDA-Public Use
  Company Number: PHHO2011US06016

PATIENT
  Sex: Female

DRUGS (7)
  1. XANAX [Concomitant]
  2. AFINITOR [Suspect]
     Indication: COLORECTAL CANCER METASTATIC
     Dosage: 10 MG, QD
     Route: 048
     Dates: start: 20110318, end: 20110404
  3. TIVOZANIB [Suspect]
     Indication: COLORECTAL CANCER METASTATIC
     Dosage: 1 MG, QD
     Route: 048
     Dates: start: 20110318, end: 20110404
  4. COMPAZINE [Concomitant]
  5. CELEXA [Concomitant]
  6. AMLODIPINE BESYLATE [Concomitant]
  7. LOMOTIL [Concomitant]

REACTIONS (1)
  - PLATELET COUNT ABNORMAL [None]
